FAERS Safety Report 7564897-9 (Version None)
Quarter: 2011Q2

REPORT INFORMATION
  Report Type: 
  Country: None (occurrence: None)
  Receive Date: 20110622
  Receipt Date: 20110203
  Transmission Date: 20111010
  Serious: Yes (Other)
  Sender: FDA-Public Use
  Company Number: US-MYLANLABS-2011S1002514

PATIENT
  Age: 16 Year
  Sex: Male

DRUGS (4)
  1. CLOZAPINE [Suspect]
     Indication: HALLUCINATION
     Route: 048
     Dates: start: 20101201, end: 20110119
  2. CLOZAPINE [Suspect]
     Route: 048
     Dates: start: 20101201, end: 20110119
  3. CITALOPRAM HYDROBROMIDE [Concomitant]
     Indication: DEPRESSED MOOD
  4. BENZTROPINE MESYLATE [Concomitant]
     Indication: EXTRAPYRAMIDAL DISORDER

REACTIONS (1)
  - GRANULOCYTOPENIA [None]
